FAERS Safety Report 9090942 (Version 1)
Quarter: 2013Q1

REPORT INFORMATION
  Report Type: Report from Study
  Country: US (occurrence: US)
  Receive Date: 20130201
  Receipt Date: 20130201
  Transmission Date: 20140127
  Serious: Yes (Hospitalization)
  Sender: FDA-Public Use
  Company Number: US-ABBOTT-12P-163-1018341-00

PATIENT
  Age: 52 Year
  Sex: Male

DRUGS (8)
  1. HUMIRA [Suspect]
     Indication: CROHN^S DISEASE
     Dates: start: 20100224
  2. HUMIRA [Suspect]
  3. HUMIRA [Suspect]
  4. PENTASA [Concomitant]
     Indication: CROHN^S DISEASE
  5. SPIRIVA [Concomitant]
     Indication: EMPHYSEMA
     Dosage: ONE CAPSULE ONCE DAILY
  6. ADVAIR 250/50 [Concomitant]
     Indication: EMPHYSEMA
     Dosage: ONE PUFF TWICE DAILY
  7. OPIUM TINTURE [Concomitant]
     Indication: EMPHYSEMA
     Dosage: 1.2M TWICE DAILY
  8. MERCAPTOPURINE [Concomitant]
     Indication: PRODUCT USED FOR UNKNOWN INDICATION
     Dosage: 50 MG ONE TABLET DAILY

REACTIONS (4)
  - Dyspnoea [Recovering/Resolving]
  - Frequent bowel movements [Unknown]
  - Crohn^s disease [Unknown]
  - Nausea [Recovered/Resolved]
